FAERS Safety Report 7784895-X (Version None)
Quarter: 2011Q3

REPORT INFORMATION
  Report Type: 
  Country: None (occurrence: None)
  Receive Date: 20110928
  Receipt Date: 20110916
  Transmission Date: 20111222
  Serious: Yes (Hospitalization)
  Sender: FDA-Public Use
  Company Number: JP-SANOFI-AVENTIS-2011SA041878

PATIENT
  Age: 68 Year
  Sex: Male
  Weight: 65 kg

DRUGS (17)
  1. WARFARIN SODIUM [Concomitant]
     Route: 048
     Dates: start: 20090616, end: 20090618
  2. ALLOPURINOL [Concomitant]
     Route: 048
     Dates: start: 20090614
  3. PLAVIX [Suspect]
     Route: 048
     Dates: start: 20090612, end: 20090612
  4. WARFARIN SODIUM [Concomitant]
     Route: 048
     Dates: start: 20090612, end: 20090615
  5. CRESTOR [Concomitant]
     Route: 048
     Dates: start: 20090612
  6. URALYT [Concomitant]
     Route: 048
     Dates: start: 20090614
  7. NICORANDIL [Concomitant]
     Dosage: 3 ML/HR CONTINUOUS IV
     Route: 042
     Dates: start: 20090612, end: 20090612
  8. PLAVIX [Suspect]
     Route: 048
     Dates: start: 20090613, end: 20090713
  9. ETODOLAC [Concomitant]
     Route: 048
     Dates: start: 20090614
  10. AMLODIPINE BESYLATE [Concomitant]
     Route: 048
     Dates: start: 20090616
  11. NITROGLYCERIN [Concomitant]
     Dosage: 3.3 ML/HR CONTINUOUS IV
     Route: 042
     Dates: start: 20090612, end: 20090613
  12. AVAPRO [Concomitant]
     Route: 048
     Dates: start: 20090612
  13. NITRODERM [Concomitant]
     Indication: ANGINA UNSTABLE
     Route: 062
     Dates: start: 20090612
  14. LANSOPRAZOLE [Concomitant]
     Route: 048
     Dates: start: 20090612
  15. WARFARIN SODIUM [Concomitant]
     Route: 048
     Dates: start: 20090619
  16. ASPIRIN [Concomitant]
     Indication: ANGINA UNSTABLE
     Route: 048
  17. HEPARIN [Concomitant]
     Dosage: DOSE:10000 UNIT(S)
     Route: 042
     Dates: start: 20090612, end: 20090612

REACTIONS (1)
  - ATRIAL FIBRILLATION [None]
